FAERS Safety Report 9960137 (Version 1)
Quarter: 2014Q1

REPORT INFORMATION
  Report Type: Spontaneous
  Country: PR (occurrence: PR)
  Receive Date: 20140305
  Receipt Date: 20140305
  Transmission Date: 20141002
  Serious: No
  Sender: FDA-Public Use
  Company Number: PR-ABBVIE-13P-131-1104587-00

PATIENT
  Sex: Female

DRUGS (1)
  1. HUMIRA [Suspect]
     Indication: PRODUCT USED FOR UNKNOWN INDICATION
     Route: 058
     Dates: start: 201210, end: 20130613

REACTIONS (5)
  - Pruritus [Unknown]
  - Dysgeusia [Unknown]
  - Dry mouth [Unknown]
  - Local swelling [Unknown]
  - Rash [Unknown]
